FAERS Safety Report 12808493 (Version 1)
Quarter: 2016Q4

REPORT INFORMATION
  Report Type: Report from Study
  Country: US (occurrence: US)
  Receive Date: 20161004
  Receipt Date: 20161004
  Transmission Date: 20170207
  Serious: Yes (Other)
  Sender: FDA-Public Use
  Company Number: US-ASTELLAS-2016US038699

PATIENT
  Age: 66 Year
  Sex: Female

DRUGS (4)
  1. VITAMIN B12 [Concomitant]
     Active Substance: CYANOCOBALAMIN
     Indication: PRODUCT USED FOR UNKNOWN INDICATION
     Route: 048
  2. VITAMIN B12 [Concomitant]
     Active Substance: CYANOCOBALAMIN
     Route: 058
  3. ERLOTINIB [Suspect]
     Active Substance: ERLOTINIB
     Indication: LUNG NEOPLASM MALIGNANT
     Route: 048
     Dates: start: 20151006
  4. ERLOTINIB [Suspect]
     Active Substance: ERLOTINIB
     Indication: LUNG NEOPLASM MALIGNANT

REACTIONS (22)
  - Diarrhoea [Recovered/Resolved]
  - Skin exfoliation [Not Recovered/Not Resolved]
  - Burning sensation [Recovering/Resolving]
  - Skin wrinkling [Not Recovered/Not Resolved]
  - Muscle spasms [Unknown]
  - Abdominal pain upper [Recovered/Resolved]
  - Dry eye [Not Recovered/Not Resolved]
  - Cough [Not Recovered/Not Resolved]
  - Erythema [Not Recovered/Not Resolved]
  - Eye pain [Unknown]
  - Dermatitis acneiform [Recovering/Resolving]
  - Rash [Unknown]
  - Amnesia [Not Recovered/Not Resolved]
  - Eye pruritus [Not Recovered/Not Resolved]
  - Excoriation [Not Recovered/Not Resolved]
  - Pruritus [Unknown]
  - Dry skin [Not Recovered/Not Resolved]
  - Acne [Recovering/Resolving]
  - Dyspnoea [Not Recovered/Not Resolved]
  - Visual acuity reduced [Not Recovered/Not Resolved]
  - Urinary tract infection [Recovered/Resolved]
  - Eyelids pruritus [Not Recovered/Not Resolved]

NARRATIVE: CASE EVENT DATE: 20151008
